FAERS Safety Report 7788818-9 (Version None)
Quarter: 2011Q3

REPORT INFORMATION
  Report Type: 
  Country: None (occurrence: None)
  Receive Date: 20110928
  Receipt Date: 20110913
  Transmission Date: 20111222
  Serious: Yes (Other)
  Sender: FDA-Public Use
  Company Number: 2011MA012916

PATIENT
  Age: 76 Year
  Sex: Male

DRUGS (8)
  1. MIRTAZAPINE [Suspect]
     Indication: PRODUCT USED FOR UNKNOWN INDICATION
     Dosage: 60 MG
  2. LORAZEPAM [Concomitant]
  3. MIRTAZAPINE [Concomitant]
  4. BENDROFLUMETHIAZIDE (BENDROFLUMETHIAZIDE) [Suspect]
     Indication: HYPERTENSION
  5. AMLODIPINE [Suspect]
     Indication: HYPERTENSION
  6. VENLAFAXINE HYDROCHLORIDE [Suspect]
     Indication: PRODUCT USED FOR UNKNOWN INDICATION
     Dosage: 75 MG
  7. VALSARTAN [Concomitant]
  8. MIRTAZAPINE [Suspect]
     Dosage: 60 MG

REACTIONS (6)
  - BLOOD SODIUM DECREASED [None]
  - URINARY HESITATION [None]
  - CIRCULATORY COLLAPSE [None]
  - FALL [None]
  - HEAD INJURY [None]
  - DRUG INTERACTION [None]
